FAERS Safety Report 19722045 (Version 10)
Quarter: 2022Q4

REPORT INFORMATION
  Report Type: Report from Study
  Country: US (occurrence: US)
  Receive Date: 20210818
  Receipt Date: 20221226
  Transmission Date: 20230113
  Serious: No
  Sender: FDA-Public Use
  Company Number: US-NOVARTISTESTPH-NVSC2021US185383

PATIENT
  Sex: Female

DRUGS (2)
  1. COSENTYX [Suspect]
     Active Substance: SECUKINUMAB
     Indication: Psoriasis
     Dosage: 300 MG, QMO
     Route: 058
  2. COSENTYX [Suspect]
     Active Substance: SECUKINUMAB
     Indication: Psoriatic arthropathy
     Dosage: UNK
     Route: 065

REACTIONS (13)
  - Skin fissures [Unknown]
  - Skin reaction [Recovering/Resolving]
  - Sinus congestion [Unknown]
  - Malaise [Unknown]
  - Pain [Unknown]
  - Illness [Unknown]
  - Bronchitis [Unknown]
  - Cough [Unknown]
  - Aphonia [Unknown]
  - Toothache [Unknown]
  - Hypersomnia [Unknown]
  - Product availability issue [Unknown]
  - COVID-19 [Unknown]
